FAERS Safety Report 19518550 (Version 8)
Quarter: 2021Q4

REPORT INFORMATION
  Report Type: Spontaneous
  Country: CA (occurrence: CA)
  Receive Date: 20210712
  Receipt Date: 20211127
  Transmission Date: 20220303
  Serious: Yes (Other)
  Sender: FDA-Public Use
  Company Number: CA-CELLTRION INC.-2021CA009330

PATIENT

DRUGS (7)
  1. INFLECTRA [Suspect]
     Active Substance: INFLIXIMAB-DYYB
     Indication: Crohn^s disease
     Dosage: 5 MG/KG, INDUCTION DOSES AT WEEK 0, 2 AND 6, THEN EVERY 8 WEEKS - ROUNDED TO HIGHER VIAL
     Route: 042
     Dates: start: 20210513, end: 20210513
  2. INFLECTRA [Suspect]
     Active Substance: INFLIXIMAB-DYYB
     Dosage: 5 MG/KG. INDUCTION DOSES AT WEEK 0, 2 AND 6, THEN EVERY 8 WEEKS - ROUNDED TO HIGHER VIAL
     Route: 042
     Dates: start: 20210527, end: 20210527
  3. INFLECTRA [Suspect]
     Active Substance: INFLIXIMAB-DYYB
     Dosage: 5 MG/KG. INDUCTION DOSES AT WEEK 0, 2 AND 6, THEN EVERY 8 WEEKS - ROUNDED TO HIGHER VIAL
     Route: 042
     Dates: start: 20210625, end: 20210625
  4. INFLECTRA [Suspect]
     Active Substance: INFLIXIMAB-DYYB
     Dosage: 5 MG/KG. INDUCTION DOSES AT WEEK 0, 2 AND 6, THEN EVERY 8 WEEKS - ROUNDED TO HIGHER VIAL
     Route: 042
     Dates: start: 20210827
  5. INFLECTRA [Suspect]
     Active Substance: INFLIXIMAB-DYYB
     Dosage: 10 MG/KG,EVERY 4WEEKS
     Route: 042
     Dates: start: 20210927
  6. INFLECTRA [Suspect]
     Active Substance: INFLIXIMAB-DYYB
     Dosage: 10 MG/KG,EVERY 4WEEKS
     Route: 042
     Dates: start: 20211022
  7. METHOTREXATE SODIUM [Concomitant]
     Active Substance: METHOTREXATE SODIUM
     Indication: Crohn^s disease
     Dosage: 15 MG
     Route: 065
     Dates: start: 20210226

REACTIONS (7)
  - Condition aggravated [Not Recovered/Not Resolved]
  - Off label use [Unknown]
  - Blood pressure fluctuation [Unknown]
  - Fistula [Not Recovered/Not Resolved]
  - Flatulence [Unknown]
  - Colitis [Unknown]
  - Discharge [Unknown]

NARRATIVE: CASE EVENT DATE: 20210101
